FAERS Safety Report 7729872-X (Version None)
Quarter: 2011Q3

REPORT INFORMATION
  Report Type: 
  Country: None (occurrence: None)
  Receive Date: 20110831
  Receipt Date: 20110818
  Transmission Date: 20111222
  Serious: Yes (Other)
  Sender: FDA-Public Use
  Company Number: 1000023135

PATIENT
  Age: 23 Year
  Sex: Female

DRUGS (2)
  1. ESCITALOPRAM OXALATE [Suspect]
     Indication: ANXIETY
     Dosage: DOSE, ORAL, (10 MG, 1 IN 1 D), ORAL
     Route: 048
     Dates: start: 20110601, end: 20110101
  2. ESCITALOPRAM OXALATE [Suspect]
     Indication: ANXIETY
     Dosage: DOSE, ORAL, (10 MG, 1 IN 1 D), ORAL
     Route: 048
     Dates: start: 20110101

REACTIONS (7)
  - EYE PAIN [None]
  - HALO VISION [None]
  - MIGRAINE [None]
  - PUPILS UNEQUAL [None]
  - DIPLOPIA [None]
  - PHOTOPHOBIA [None]
  - VITREOUS FLOATERS [None]
